FAERS Safety Report 25481528 (Version 2)
Quarter: 2025Q3

REPORT INFORMATION
  Report Type: Spontaneous
  Country: US (occurrence: US)
  Receive Date: 20250626
  Receipt Date: 20250923
  Transmission Date: 20251021
  Serious: Yes (Hospitalization, Other)
  Sender: NOVO NORDISK
  Company Number: US-NOVOPROD-1460720

PATIENT
  Age: 77 Year
  Sex: Female

DRUGS (6)
  1. WEGOVY [Suspect]
     Active Substance: SEMAGLUTIDE
     Indication: Weight control
     Dosage: 1 MG, QW
     Route: 058
     Dates: start: 202406, end: 202412
  2. WEGOVY [Suspect]
     Active Substance: SEMAGLUTIDE
     Indication: Cardiac disorder
     Dosage: 2.4 MG, QW
     Route: 058
     Dates: end: 202412
  3. WEGOVY [Suspect]
     Active Substance: SEMAGLUTIDE
     Dosage: 2.4 MG, QW
     Route: 058
  4. WEGOVY [Suspect]
     Active Substance: SEMAGLUTIDE
     Indication: Obstructive sleep apnoea syndrome
  5. WEGOVY [Suspect]
     Active Substance: SEMAGLUTIDE
     Indication: Hyperlipidaemia
     Dosage: 1 MG, QW
     Route: 058
     Dates: start: 20250317
  6. COVID-19 VACCINE [Concomitant]
     Indication: Product used for unknown indication

REACTIONS (7)
  - Angioedema [Recovered/Resolved]
  - Idiopathic angioedema [Unknown]
  - Increased appetite [Unknown]
  - Feeling abnormal [Recovered/Resolved]
  - Gastrointestinal disorder [Recovered/Resolved]
  - Vomiting [Recovered/Resolved]
  - Weight loss poor [Unknown]

NARRATIVE: CASE EVENT DATE: 20241227
